FAERS Safety Report 19429420 (Version 3)
Quarter: 2021Q3

REPORT INFORMATION
  Report Type: Spontaneous
  Country: DE (occurrence: DE)
  Receive Date: 20210617
  Receipt Date: 20210803
  Transmission Date: 20211014
  Serious: Yes (Other)
  Sender: FDA-Public Use
  Company Number: DE-HRAPH01-2021000505

PATIENT
  Age: 39 Year
  Sex: Female

DRUGS (4)
  1. ELLAONE [Suspect]
     Active Substance: ULIPRISTAL ACETATE
     Route: 048
     Dates: start: 201911
  2. ELLAONE [Suspect]
     Active Substance: ULIPRISTAL ACETATE
     Route: 048
     Dates: start: 201910
  3. ELLAONE [Suspect]
     Active Substance: ULIPRISTAL ACETATE
     Route: 048
     Dates: start: 202007
  4. PIDANA [Suspect]
     Active Substance: LEVONORGESTREL
     Route: 048
     Dates: start: 202002

REACTIONS (5)
  - Haematochezia [Unknown]
  - Vulvovaginal mycotic infection [Unknown]
  - Abdominal pain [Unknown]
  - Abdominal distension [Unknown]
  - Weight increased [Not Recovered/Not Resolved]

NARRATIVE: CASE EVENT DATE: 202003
